FAERS Safety Report 15071315 (Version 1)
Quarter: 2018Q2

REPORT INFORMATION
  Report Type: Report from Study
  Country: US (occurrence: US)
  Receive Date: 20180626
  Receipt Date: 20180626
  Transmission Date: 20180711
  Serious: No
  Sender: FDA-Public Use
  Company Number: US-AMGEN-USASL2015089308

PATIENT
  Sex: Female

DRUGS (2)
  1. CORTISOL [Concomitant]
     Active Substance: HYDROCORTISONE
     Indication: BACK PAIN
     Dosage: UNK
  2. PROLIA [Suspect]
     Active Substance: DENOSUMAB
     Indication: RHEUMATOID ARTHRITIS
     Dosage: UNK
     Route: 065
     Dates: start: 2014

REACTIONS (6)
  - Bone fragmentation [Not Recovered/Not Resolved]
  - Back pain [Unknown]
  - Off label use [Unknown]
  - Lower limb fracture [Unknown]
  - Impaired healing [Unknown]
  - Bone disorder [Unknown]

NARRATIVE: CASE EVENT DATE: 201501
